FAERS Safety Report 12741563 (Version 2)
Quarter: 2016Q3

REPORT INFORMATION
  Report Type: Spontaneous
  Country: MX (occurrence: MX)
  Receive Date: 20160914
  Receipt Date: 20160914
  Transmission Date: 20161109
  Serious: Yes (Other)
  Sender: FDA-Public Use
  Company Number: MX-SA-2016SA165325

PATIENT
  Age: 77 Year
  Sex: Male
  Weight: 63 kg

DRUGS (4)
  1. PLAVIX [Suspect]
     Active Substance: CLOPIDOGREL BISULFATE
     Indication: THROMBOSIS PROPHYLAXIS
     Route: 048
     Dates: start: 2012
  2. ASPIRINA PROTECT [Concomitant]
     Active Substance: ASPIRIN
     Indication: PROPHYLAXIS
     Route: 048
     Dates: start: 2012
  3. COPLAVIX [Concomitant]
     Active Substance: ASPIRIN\CLOPIDOGREL BISULFATE
     Route: 048
     Dates: start: 2012, end: 2012
  4. ISOSORBIDE. [Concomitant]
     Active Substance: ISOSORBIDE
     Indication: PROPHYLAXIS
     Route: 048
     Dates: start: 2004

REACTIONS (1)
  - Anterograde amnesia [Not Recovered/Not Resolved]

NARRATIVE: CASE EVENT DATE: 2016
